FAERS Safety Report 11792395 (Version 2)
Quarter: 2016Q1

REPORT INFORMATION
  Report Type: Spontaneous
  Country: FI (occurrence: FI)
  Receive Date: 20151202
  Receipt Date: 20160112
  Transmission Date: 20160525
  Serious: Yes (Hospitalization)
  Sender: FDA-Public Use
  Company Number: FI-ABBVIE-15K-055-1510237-00

PATIENT
  Age: 17 Year
  Sex: Male
  Weight: 96 kg

DRUGS (1)
  1. HUMIRA [Suspect]
     Active Substance: ADALIMUMAB
     Indication: CROHN^S DISEASE
     Route: 058
     Dates: start: 201504, end: 201510

REACTIONS (5)
  - C-reactive protein increased [Unknown]
  - Anal abscess [Recovered/Resolved]
  - Drug specific antibody present [Unknown]
  - Red blood cell sedimentation rate increased [Unknown]
  - Fistula [Unknown]

NARRATIVE: CASE EVENT DATE: 201510
